FAERS Safety Report 21528560 (Version 10)
Quarter: 2025Q3

REPORT INFORMATION
  Report Type: Spontaneous
  Country: JP (occurrence: JP)
  Receive Date: 20221031
  Receipt Date: 20250822
  Transmission Date: 20251020
  Serious: Yes (Hospitalization, Other)
  Sender: ASTELLAS
  Company Number: JP-ASTELLAS-2022JP014483

PATIENT
  Age: 87 Year
  Sex: Male
  Weight: 67 kg

DRUGS (16)
  1. PADCEV [Suspect]
     Active Substance: ENFORTUMAB VEDOTIN-EJFV
     Indication: Bladder cancer
     Route: 042
     Dates: start: 20220913, end: 20220928
  2. Urso Tablet [Concomitant]
     Indication: Liver disorder
     Route: 048
     Dates: start: 20190426
  3. CELECOXIB [Concomitant]
     Active Substance: CELECOXIB
     Indication: Back pain
     Route: 048
     Dates: start: 20200722
  4. REBAMIPIDE [Concomitant]
     Active Substance: REBAMIPIDE
     Indication: Gastritis prophylaxis
     Route: 048
     Dates: start: 20200722
  5. Pregabalin Tablet [Concomitant]
     Indication: Back pain
     Route: 048
     Dates: start: 20200804
  6. Carbazochrome sulfonate Tablet [Concomitant]
     Indication: Bladder cancer
     Route: 048
     Dates: start: 20210107
  7. TRANEXAMIC ACID [Concomitant]
     Active Substance: TRANEXAMIC ACID
     Indication: Bladder cancer
     Route: 048
     Dates: start: 20210107
  8. ATORVASTATIN [Concomitant]
     Active Substance: ATORVASTATIN
     Indication: Lipids abnormal
     Route: 048
  9. AMLODIPINE [Concomitant]
     Active Substance: AMLODIPINE BESYLATE
     Indication: Hypertension
     Route: 048
  10. DEXAMETHASONE SODIUM PHOSPHATE [Concomitant]
     Active Substance: DEXAMETHASONE SODIUM PHOSPHATE
     Indication: Product used for unknown indication
     Dosage: INFUSION ON THE ENFORTUMAB VEDOTIN (GENETICAL RECOMBINATION) ADMINISTRATION DAY
     Route: 042
     Dates: start: 20220913, end: 20220928
  11. Eksalb Ointment [Concomitant]
     Indication: Skin erosion
     Route: 061
     Dates: start: 20221003
  12. Eksalb Ointment [Concomitant]
     Indication: Skin ulcer
  13. Eksalb Ointment [Concomitant]
     Indication: Swelling
  14. Pandel Ointment [Concomitant]
     Indication: Skin erosion
     Route: 061
     Dates: start: 20221003
  15. Pandel Ointment [Concomitant]
     Indication: Skin ulcer
  16. Pandel Ointment [Concomitant]
     Indication: Swelling

REACTIONS (13)
  - Rhabdomyolysis [Recovered/Resolved]
  - Neuroleptic malignant syndrome [Recovered/Resolved]
  - Myocarditis [Recovered/Resolved]
  - Haematuria [Not Recovered/Not Resolved]
  - Skin ulcer [Recovered/Resolved]
  - Skin erosion [Recovered/Resolved]
  - Myalgia [Recovered/Resolved]
  - Arthralgia [Recovered/Resolved]
  - Blood creatine phosphokinase increased [Recovered/Resolved]
  - Eosinophilia [Recovered/Resolved]
  - Swelling [Recovering/Resolving]
  - Muscle abscess [Recovered/Resolved]
  - Eye symptom [Unknown]

NARRATIVE: CASE EVENT DATE: 20220920
